FAERS Safety Report 24001353 (Version 1)
Quarter: 2024Q2

REPORT INFORMATION
  Report Type: Spontaneous
  Country: TR (occurrence: TR)
  Receive Date: 20240621
  Receipt Date: 20240621
  Transmission Date: 20240716
  Serious: Yes (Other)
  Sender: FDA-Public Use
  Company Number: TR-DSJP-DSJ-2024-126965

PATIENT
  Age: 69 Year
  Sex: Male

DRUGS (2)
  1. EDOXABAN [Suspect]
     Active Substance: EDOXABAN
     Indication: Atrial fibrillation
     Dosage: 60 MG, QD
     Route: 048
  2. CARVEDILOL [Suspect]
     Active Substance: CARVEDILOL
     Indication: Atrial fibrillation
     Dosage: 12.5 MG, BID
     Route: 048

REACTIONS (1)
  - Cutaneous vasculitis [Recovered/Resolved]
